FAERS Safety Report 7557274-8 (Version None)
Quarter: 2011Q2

REPORT INFORMATION
  Report Type: 
  Country: None (occurrence: None)
  Receive Date: 20110620
  Receipt Date: 20080711
  Transmission Date: 20111010
  Serious: Yes (Death, Hospitalization)
  Sender: FDA-Public Use
  Company Number: PHHY2008DE37522

PATIENT
  Sex: Male
  Weight: 58 kg

DRUGS (4)
  1. CLOXIN [Concomitant]
  2. KALIUM RETARD [Concomitant]
  3. SANDOSTATIN LAR [Suspect]
     Indication: NEUROENDOCRINE TUMOUR
     Dosage: 50 MG, UNK
     Route: 030
     Dates: start: 20070901
  4. BISOPROLOL FUMARATE [Concomitant]

REACTIONS (4)
  - DIARRHOEA [None]
  - GENERAL PHYSICAL HEALTH DETERIORATION [None]
  - DECREASED APPETITE [None]
  - DEATH [None]
